FAERS Safety Report 4481203-7 (Version None)
Quarter: 2004Q4

REPORT INFORMATION
  Report Type: 
  Country: None (occurrence: None)
  Receive Date: 20041021
  Receipt Date: 20041015
  Transmission Date: 20050328
  Serious: Yes (Death)
  Sender: FDA-Public Use
  Company Number: JP-JNJFOC-20041004299

PATIENT
  Age: 80 Year
  Sex: Female

DRUGS (2)
  1. TAVANIC [Suspect]
     Indication: DRUG USE FOR UNKNOWN INDICATION
     Route: 042
     Dates: start: 20040906, end: 20040910
  2. RAMIPRIL [Concomitant]
     Route: 047

REACTIONS (2)
  - HEPATITIS A [None]
  - HEPATITIS ACUTE [None]
